FAERS Safety Report 7056847-9 (Version None)
Quarter: 2010Q4

REPORT INFORMATION
  Report Type: 
  Country: None (occurrence: None)
  Receive Date: 20101022
  Receipt Date: 20101012
  Transmission Date: 20110411
  Serious: Yes (Hospitalization, Other)
  Sender: FDA-Public Use
  Company Number: GB-JNJFOC-20101004692

PATIENT
  Age: 57 Year
  Sex: Male

DRUGS (8)
  1. ITRACONAZOLE [Suspect]
     Indication: KERATITIS FUNGAL
     Route: 048
  2. ITRACONAZOLE [Suspect]
     Route: 048
  3. ITRACONAZOLE [Suspect]
     Route: 048
  4. MICONAZOLE [Concomitant]
     Indication: KERATITIS FUNGAL
     Route: 057
  5. MICONAZOLE [Concomitant]
     Route: 057
  6. MICONAZOLE [Concomitant]
     Route: 047
  7. MICONAZOLE [Concomitant]
     Route: 042
  8. MICONAZOLE [Concomitant]
     Route: 042

REACTIONS (3)
  - DRUG RESISTANCE [None]
  - ENDOPHTHALMITIS [None]
  - KERATITIS FUNGAL [None]
